FAERS Safety Report 7931975-1 (Version None)
Quarter: 2011Q4

REPORT INFORMATION
  Report Type: 
  Country: None (occurrence: None)
  Receive Date: 20111121
  Receipt Date: 20111111
  Transmission Date: 20120403
  Serious: Yes (Hospitalization, Other)
  Sender: FDA-Public Use
  Company Number: US-ROCHE-1012080

PATIENT
  Sex: Female

DRUGS (14)
  1. DIAZEPAM [Concomitant]
  2. CELEBREX [Concomitant]
  3. AVASTIN [Suspect]
     Indication: RETINAL VEIN OCCLUSION
  4. ASPIRIN [Concomitant]
  5. TRIAMTERENE [Concomitant]
  6. NEXIUM [Concomitant]
  7. LUCENTIS [Suspect]
     Indication: RETINAL VEIN OCCLUSION
     Route: 050
     Dates: start: 20110824
  8. OXYCONTIN [Concomitant]
  9. EFFEXOR [Concomitant]
  10. SINGULAIR [Concomitant]
  11. CRESTOR [Concomitant]
  12. MORPHINE SULFATE [Concomitant]
  13. FLEXERIL [Concomitant]
  14. MYSOLINE [Concomitant]

REACTIONS (6)
  - THROMBOSIS [None]
  - HAEMOGLOBIN DECREASED [None]
  - BLOOD CHOLESTEROL INCREASED [None]
  - VISUAL ACUITY REDUCED [None]
  - OEDEMA PERIPHERAL [None]
  - HAEMATOCRIT DECREASED [None]
